FAERS Safety Report 6195752-7 (Version None)
Quarter: 2009Q2

REPORT INFORMATION
  Report Type: 
  Country: None (occurrence: None)
  Receive Date: 20090520
  Receipt Date: 20070820
  Transmission Date: 20091009
  Serious: Yes (Hospitalization, Other)
  Sender: FDA-Public Use
  Company Number: US-ASTRAZENECA-2006UW10858

PATIENT
  Age: 24158 Day
  Sex: Female
  Weight: 58.5 kg

DRUGS (19)
  1. SEROQUEL [Suspect]
     Indication: ANXIETY
     Route: 048
     Dates: start: 20030701
  2. SEROQUEL [Suspect]
     Indication: DEPRESSION
     Route: 048
     Dates: start: 20030701
  3. SEROQUEL [Suspect]
     Indication: BIPOLAR DISORDER
     Route: 048
     Dates: start: 20030701
  4. SEROQUEL [Suspect]
     Dosage: 25-100 MG
     Route: 048
     Dates: start: 20040325
  5. SEROQUEL [Suspect]
     Dosage: 25-100 MG
     Route: 048
     Dates: start: 20040325
  6. SEROQUEL [Suspect]
     Dosage: 25-100 MG
     Route: 048
     Dates: start: 20040325
  7. KLONOPIN [Concomitant]
     Dosage: 0.5-1 MG
     Route: 065
  8. ATIVAN [Concomitant]
     Dosage: 0.5 MG TQD PRN
     Route: 065
  9. AMBIEN [Concomitant]
     Dosage: 100 MG QHS PRN
     Route: 065
  10. NEURONTIN [Concomitant]
     Dosage: 300 MG T TID
     Route: 065
  11. LEXAPRO [Concomitant]
     Route: 065
  12. DICLOFENAC POT [Concomitant]
     Route: 065
  13. TRAMADOL HCL [Concomitant]
     Route: 065
  14. PREDNISONE [Concomitant]
     Route: 065
  15. HYDROCODONE BITARTRATE [Concomitant]
     Route: 065
  16. CYCLOBENZAPRINE HCL [Concomitant]
     Route: 065
  17. MECLIZINE [Concomitant]
     Dosage: 12.5-25 MG
     Route: 065
  18. LISINOPRIL [Concomitant]
     Route: 065
  19. NORTRIPTYLINE HCL [Concomitant]
     Route: 065

REACTIONS (26)
  - BRONCHITIS CHRONIC [None]
  - BURSITIS [None]
  - CERVICOBRACHIAL SYNDROME [None]
  - CRYING [None]
  - EMPHYSEMA [None]
  - FALL [None]
  - FATIGUE [None]
  - FEELING ABNORMAL [None]
  - HEADACHE [None]
  - HYPERGLYCAEMIA [None]
  - HYPOAESTHESIA [None]
  - INFLAMMATION [None]
  - LABILE BLOOD PRESSURE [None]
  - MAJOR DEPRESSION [None]
  - MUSCLE STRAIN [None]
  - OESOPHAGEAL DISORDER [None]
  - PAIN IN EXTREMITY [None]
  - PANIC DISORDER [None]
  - PARAESTHESIA [None]
  - ROAD TRAFFIC ACCIDENT [None]
  - ROTATOR CUFF REPAIR [None]
  - ROTATOR CUFF SYNDROME [None]
  - SUICIDAL IDEATION [None]
  - TENDON RUPTURE [None]
  - TENDONITIS [None]
  - VISION BLURRED [None]
